FAERS Safety Report 6229469-7 (Version None)
Quarter: 2009Q2

REPORT INFORMATION
  Report Type: 
  Country: None (occurrence: None)
  Receive Date: 20090615
  Receipt Date: 20090608
  Transmission Date: 20091009
  Serious: Yes (Hospitalization)
  Sender: FDA-Public Use
  Company Number: A0761190A

PATIENT
  Age: 41 Year
  Sex: Male
  Weight: 93.2 kg

DRUGS (15)
  1. AVANDIA [Suspect]
     Dosage: 8MG PER DAY
     Route: 048
     Dates: start: 19990101, end: 20080101
  2. METFORMIN HYDROCHLORIDE [Concomitant]
  3. INSULIN [Concomitant]
  4. TRICOR [Concomitant]
  5. VYTORIN [Concomitant]
  6. NIASPAN [Concomitant]
  7. ALLEGRA D 24 HOUR [Concomitant]
  8. VASOTEC [Concomitant]
  9. NEXIUM [Concomitant]
  10. VALIUM [Concomitant]
  11. OMACOR [Concomitant]
  12. LIPITOR [Concomitant]
  13. ATENOLOL [Concomitant]
  14. PERCOCET [Concomitant]
  15. ZANTAC [Concomitant]

REACTIONS (4)
  - ATRIOVENTRICULAR BLOCK [None]
  - MYOCARDIAL INFARCTION [None]
  - MYOCARDIAL ISCHAEMIA [None]
  - SICK SINUS SYNDROME [None]
